FAERS Safety Report 8974275 (Version 1)
Quarter: 2012Q4

REPORT INFORMATION
  Report Type: Spontaneous
  Country: US (occurrence: None)
  Receive Date: 20121212
  Receipt Date: 20121212
  Transmission Date: 20130627
  Serious: Yes (Other)
  Sender: FDA-Public Use
  Company Number: 1511364

PATIENT
  Age: 81 Year
  Sex: Male
  Weight: 68.18 kg

DRUGS (1)
  1. PAMIDRONATE DISODIUM [Suspect]
     Indication: MULTIPLE MYELOMA
     Route: 042
     Dates: start: 20100512, end: 20120808

REACTIONS (2)
  - Lung adenocarcinoma [None]
  - Second primary malignancy [None]
